FAERS Safety Report 5638936-6 (Version None)
Quarter: 2008Q1

REPORT INFORMATION
  Report Type: 
  Country: None (occurrence: None)
  Receive Date: 20080225
  Receipt Date: 20080225
  Transmission Date: 20080703
  Serious: Yes (Life-Threatening, Other)
  Sender: FDA-Public Use
  Company Number: None

PATIENT
  Age: 52 Year
  Sex: Female
  Weight: 78.9259 kg

DRUGS (1)
  1. CHANTIX [Suspect]
     Indication: SMOKING CESSATION THERAPY
     Dosage: ONE TABLET MORNING AND NIGHT  TWICE A DAY  PO
     Route: 048

REACTIONS (4)
  - ANGER [None]
  - CRYING [None]
  - MOOD SWINGS [None]
  - SUICIDAL IDEATION [None]
